FAERS Safety Report 5031080-0 (Version None)
Quarter: 2006Q2

REPORT INFORMATION
  Report Type: 
  Country: None (occurrence: None)
  Receive Date: 20060619
  Receipt Date: 20060619
  Transmission Date: 20061013
  Serious: Yes (Hospitalization, Other)
  Sender: FDA-Public Use
  Company Number: None

PATIENT
  Age: 50 Year
  Sex: Male
  Weight: 65.7716 kg

DRUGS (1)
  1. ZOLOFT [Suspect]
     Dosage: OFTEN-SEVERAL YEAR
     Dates: start: 19961009, end: 19991025

REACTIONS (3)
  - IMMOBILE [None]
  - SEXUAL DYSFUNCTION [None]
  - VOMITING [None]
